FAERS Safety Report 7286678-6 (Version None)
Quarter: 2011Q1

REPORT INFORMATION
  Report Type: 
  Country: None (occurrence: None)
  Receive Date: 20110210
  Receipt Date: 20110201
  Transmission Date: 20110831
  Serious: No
  Sender: FDA-Public Use
  Company Number: US-ASTRAZENECA-2011SE05530

PATIENT
  Sex: Male

DRUGS (4)
  1. GEODON [Suspect]
     Route: 065
  2. ABILIFY [Suspect]
     Route: 065
  3. SEROQUEL [Suspect]
     Route: 048
  4. RISPERDAL [Suspect]
     Route: 065

REACTIONS (2)
  - DRUG INEFFECTIVE [None]
  - AGRANULOCYTOSIS [None]
